FAERS Safety Report 5736111-8 (Version None)
Quarter: 2008Q2

REPORT INFORMATION
  Report Type: 
  Country: None (occurrence: None)
  Receive Date: 20080509
  Receipt Date: 20080428
  Transmission Date: 20081010
  Serious: Yes (Other)
  Sender: FDA-Public Use
  Company Number: 2008AL002588

PATIENT
  Age: 83 Year
  Sex: Male

DRUGS (3)
  1. DIGOXIN [Suspect]
     Indication: MITRAL VALVE PROLAPSE
     Dosage: 0.25 MG, QD, PO
     Route: 048
  2. ATENOLOL [Concomitant]
  3. COUMADIN [Concomitant]

REACTIONS (4)
  - CHEST PAIN [None]
  - MUSCULOSKELETAL PAIN [None]
  - MYOCARDIAL INFARCTION [None]
  - NAUSEA [None]
